FAERS Safety Report 10851720 (Version 1)
Quarter: 2015Q1

REPORT INFORMATION
  Report Type: Spontaneous
  Country: US (occurrence: US)
  Receive Date: 20150222
  Receipt Date: 20150222
  Transmission Date: 20150721
  Serious: No
  Sender: FDA-Public Use
  Company Number: US-ALLERGAN-1410398US

PATIENT
  Sex: Male

DRUGS (1)
  1. BOTOX [Suspect]
     Active Substance: ONABOTULINUMTOXINA
     Indication: MIGRAINE
     Dosage: UNK, SINGLE
     Dates: start: 20140312, end: 20140312

REACTIONS (4)
  - Sensory disturbance [Unknown]
  - Neck pain [Unknown]
  - Drug ineffective [Unknown]
  - Vision blurred [Unknown]

NARRATIVE: CASE EVENT DATE: 20140411
